FAERS Safety Report 19211785 (Version 1)
Quarter: 2021Q2

REPORT INFORMATION
  Report Type: Spontaneous
  Country: US (occurrence: US)
  Receive Date: 20210504
  Receipt Date: 20210504
  Transmission Date: 20210717
  Serious: Yes (Hospitalization)
  Sender: FDA-Public Use
  Company Number: US-PRINSTON PHARMACEUTICAL INC.-2021PRN00151

PATIENT
  Age: 23 Year
  Sex: Female

DRUGS (1)
  1. BUPROPION. [Suspect]
     Active Substance: BUPROPION
     Dosage: EXTENDED?RELEASE; AT LEAST 100 TABLETS 150 MG EXTENDED RELEASE TABLETS
     Route: 048

REACTIONS (6)
  - Tachycardia [Unknown]
  - Intentional overdose [Recovered/Resolved]
  - Cardiomyopathy [Recovering/Resolving]
  - Cardiogenic shock [Recovering/Resolving]
  - Status epilepticus [Unknown]
  - Hallucination [Unknown]
